FAERS Safety Report 17053301 (Version 1)
Quarter: 2019Q4

REPORT INFORMATION
  Report Type: Spontaneous
  Country: US (occurrence: US)
  Receive Date: 20191022
  Receipt Date: 20191022
  Transmission Date: 20200122
  Serious: Yes (Hospitalization)
  Sender: FDA-Public Use
  Company Number: None

PATIENT
  Sex: Female

DRUGS (2)
  1. TRULANCE [Concomitant]
     Active Substance: PLECANATIDE
  2. ENBREL [Suspect]
     Active Substance: ETANERCEPT
     Indication: RHEUMATOID ARTHRITIS
     Dosage: ?          OTHER FREQUENCY:Q 7 DAYS;?
     Route: 058
     Dates: start: 20190422

REACTIONS (2)
  - Rheumatoid arthritis [None]
  - Bronchitis [None]
